FAERS Safety Report 9572810 (Version 1)
Quarter: 2013Q4

REPORT INFORMATION
  Report Type: Spontaneous
  Country: KR (occurrence: KR)
  Receive Date: 20131001
  Receipt Date: 20131001
  Transmission Date: 20140711
  Serious: Yes (Other)
  Sender: FDA-Public Use
  Company Number: KR-BAYER-2013-117111

PATIENT
  Age: 64 Year
  Sex: Female

DRUGS (4)
  1. NEXAVAR [Suspect]
     Dosage: UNK
     Route: 048
     Dates: start: 20121106
  2. NEXAVAR [Suspect]
     Dosage: 400 MG, BID
     Route: 048
  3. NEXAVAR [Suspect]
     Dosage: 400 MG
     Route: 048
     Dates: start: 20121204
  4. NEXAVAR [Suspect]
     Dosage: REDUCTION (NOS)
     Route: 048

REACTIONS (3)
  - Pain [None]
  - Rash [None]
  - Metastatic renal cell carcinoma [None]
